FAERS Safety Report 9333932 (Version 3)
Quarter: 2014Q2

REPORT INFORMATION
  Report Type: Spontaneous
  Country: US (occurrence: US)
  Receive Date: 20130606
  Receipt Date: 20140519
  Transmission Date: 20141212
  Serious: No
  Sender: FDA-Public Use
  Company Number: US-AMGEN-USASP2013017116

PATIENT
  Age: 84 Year
  Sex: Female
  Weight: 70 kg

DRUGS (13)
  1. PROLIA [Suspect]
     Indication: OSTEOPOROSIS POSTMENOPAUSAL
     Dosage: 60 MG, Q6MO
     Route: 065
     Dates: start: 20121004
  2. CALCIUM WITH VITAMIN D             /00944201/ [Concomitant]
  3. CARDIZEM                           /00489701/ [Concomitant]
     Dosage: 30 MG, BID
     Dates: start: 20130402
  4. ZOSTAVAX [Concomitant]
     Dosage: UNK UNK, QD
     Dates: start: 20130227
  5. RAMIPRIL [Concomitant]
     Dosage: 2.5 MG, QD
     Dates: start: 20130227
  6. DIGOXIN [Concomitant]
     Dosage: 0.125 MG, QD
     Dates: start: 20130227
  7. BIOTIN [Concomitant]
     Dosage: UNK
     Dates: start: 20130227
  8. CRANBERRY                          /01512301/ [Concomitant]
     Dosage: UNK
     Dates: start: 20121113
  9. FISH OIL [Concomitant]
     Dosage: 2000 MG, QD
     Dates: start: 20120530
  10. COENZYME [Concomitant]
     Dosage: 30 MG, QD
     Dates: start: 20111010
  11. CALCIUM [Concomitant]
     Dosage: 1300 MG, QD
     Dates: start: 20100629
  12. ASPIRIN [Concomitant]
     Dosage: 81 MG, QD
     Dates: start: 20091113
  13. PLANT STEROL [Concomitant]
     Dosage: UNK UNK, TID
     Dates: start: 20091113

REACTIONS (5)
  - Gait disturbance [Not Recovered/Not Resolved]
  - Vision blurred [Unknown]
  - Back pain [Not Recovered/Not Resolved]
  - Poor peripheral circulation [Unknown]
  - Pain in extremity [Recovering/Resolving]
